FAERS Safety Report 8471833-X (Version None)
Quarter: 2012Q2

REPORT INFORMATION
  Report Type: 
  Country: None (occurrence: None)
  Receive Date: 20120323
  Receipt Date: 20110930
  Transmission Date: 20120825
  Serious: Yes (Hospitalization)
  Sender: FDA-Public Use
  Company Number: 163-21880-11100238

PATIENT
  Age: 72 Year
  Sex: Male

DRUGS (8)
  1. . [Concomitant]
  2. . [Concomitant]
  3. REVLIMID [Suspect]
     Indication: MULTIPLE MYELOMA
     Dosage: 25 MG, 1 IN 1 D, PO TEMPORARILY INTERRUPTED
     Route: 048
     Dates: start: 20110601
  4. REVLIMID [Suspect]
     Indication: MULTIPLE MYELOMA
     Dosage: 25 MG, 1 IN 1 D, PO TEMPORARILY INTERRUPTED
     Route: 048
     Dates: start: 20090301, end: 20090101
  5. . [Concomitant]
  6. . [Concomitant]
  7. . [Concomitant]
  8. . [Concomitant]

REACTIONS (1)
  - THROMBOSIS [None]
